FAERS Safety Report 8307703-7 (Version None)
Quarter: 2012Q2

REPORT INFORMATION
  Report Type: 
  Country: None (occurrence: None)
  Receive Date: 20120424
  Receipt Date: 20120420
  Transmission Date: 20120825
  Serious: No
  Sender: FDA-Public Use
  Company Number: US-TEVA-334598USA

PATIENT
  Sex: Female
  Weight: 71.732 kg

DRUGS (3)
  1. TOPAMAX [Concomitant]
     Indication: MIGRAINE
     Dates: start: 20110101
  2. ADVAIR DISKUS 100/50 [Concomitant]
     Indication: ASTHMA
     Dates: start: 20090101
  3. PLAN B ONE-STEP [Suspect]
     Indication: POST COITAL CONTRACEPTION
     Dosage: 1.5 MILLIGRAM;
     Route: 048
     Dates: start: 20120418, end: 20120418

REACTIONS (2)
  - NIPPLE PAIN [None]
  - PELVIC PAIN [None]
